FAERS Safety Report 9408333 (Version 3)
Quarter: 2014Q2

REPORT INFORMATION
  Report Type: Report from Study
  Country: US (occurrence: US)
  Receive Date: 20130718
  Receipt Date: 20140509
  Transmission Date: 20141212
  Serious: Yes (Hospitalization)
  Sender: FDA-Public Use
  Company Number: US-US-EMD SERONO, INC.-7224111

PATIENT
  Sex: Male

DRUGS (2)
  1. REBIF [Suspect]
     Indication: MULTIPLE SCLEROSIS
     Route: 058
     Dates: start: 20050812
  2. HEPARIN [Concomitant]
     Indication: THROMBOSIS
     Route: 058

REACTIONS (3)
  - Pericarditis [Unknown]
  - Bacterial disease carrier [Unknown]
  - Cellulitis [Recovering/Resolving]
